FAERS Safety Report 18103366 (Version 1)
Quarter: 2020Q3

REPORT INFORMATION
  Report Type: Spontaneous
  Country: US (occurrence: US)
  Receive Date: 20200731
  Receipt Date: 20200731
  Transmission Date: 20201103
  Serious: No
  Sender: FDA-Public Use
  Company Number: None

PATIENT
  Age: 69 Year
  Sex: Female
  Weight: 102 kg

DRUGS (22)
  1. ALBUTEROL INHALER [Concomitant]
     Active Substance: ALBUTEROL
     Dates: start: 20200723, end: 20200727
  2. CEFEPIME [Concomitant]
     Active Substance: CEFEPIME HYDROCHLORIDE
     Dates: start: 20200726
  3. ASCORBIC ACID IV [Concomitant]
     Dates: start: 20200725, end: 20200729
  4. BENZONATATE. [Concomitant]
     Active Substance: BENZONATATE
     Dates: start: 20200725, end: 20200727
  5. BUDESONIDE RESPULE [Concomitant]
     Dates: start: 20200724
  6. DOXYCYCLINE IV [Concomitant]
     Dates: start: 20200723, end: 20200724
  7. ROSUVASTATIN. [Concomitant]
     Active Substance: ROSUVASTATIN
     Dates: start: 20200723, end: 20200727
  8. ENOXAPARIN [Concomitant]
     Active Substance: ENOXAPARIN
     Dates: start: 20200723, end: 20200724
  9. DEXMETHASONE [Concomitant]
     Active Substance: DEXAMETHASONE
     Dates: start: 20200724
  10. FENTANYL PCA [Concomitant]
     Active Substance: FENTANYL
     Dates: start: 20200726, end: 20200727
  11. VEKLURY [Suspect]
     Active Substance: REMDESIVIR
     Indication: COVID-19 TREATMENT
     Route: 042
     Dates: start: 20200723, end: 20200727
  12. ASPIRIN ENTERIC COATED [Concomitant]
     Active Substance: ASPIRIN
     Dates: start: 20200724, end: 20200727
  13. INSULIN GLARGINE [Concomitant]
     Active Substance: INSULIN GLARGINE
     Dates: start: 20200726
  14. PROPROFOL [Concomitant]
     Active Substance: PROPOFOL
     Dates: start: 20200726
  15. ALBUTEROL/IPRATROPIUM [Concomitant]
     Active Substance: ALBUTEROL\IPRATROPIUM
     Dates: start: 20200727
  16. PANTOPRAZOLE IV [Concomitant]
     Active Substance: PANTOPRAZOLE SODIUM
     Dates: start: 20200724
  17. ENOXAPARIN [Concomitant]
     Active Substance: ENOXAPARIN
     Dates: start: 20200727
  18. LEVOTHYROXINE. [Concomitant]
     Active Substance: LEVOTHYROXINE
     Dates: start: 20200723
  19. ROCURONIUM [Concomitant]
     Active Substance: ROCURONIUM BROMIDE
     Dates: start: 20200727, end: 20200730
  20. HEPARIN SUBQ [Concomitant]
     Dates: start: 20200724, end: 20200727
  21. INSULIN REGULAR [Concomitant]
     Active Substance: INSULIN NOS
     Dates: start: 20200723
  22. ROPINIROLE. [Concomitant]
     Active Substance: ROPINIROLE
     Dates: start: 20200723, end: 20200726

REACTIONS (1)
  - Transaminases increased [None]

NARRATIVE: CASE EVENT DATE: 20200728
